FAERS Safety Report 9565677 (Version 2)
Quarter: 2013Q3

REPORT INFORMATION
  Report Type: Spontaneous
  Country: US (occurrence: US)
  Receive Date: 20130930
  Receipt Date: 20130930
  Transmission Date: 20140515
  Serious: Yes (Hospitalization)
  Sender: FDA-Public Use
  Company Number: US-DENDREON CORPORATION-2013PROUSA03111

PATIENT
  Age: 68 Year
  Sex: 0
  Weight: 136.5 kg

DRUGS (2)
  1. PROVENGE [Suspect]
     Indication: PROSTATE CANCER METASTATIC
     Dosage: 250 ML, SINGLE
     Route: 042
     Dates: start: 20130802, end: 20130802
  2. PROVENGE [Suspect]
     Dosage: 250 ML, SINGLE
     Route: 042
     Dates: start: 20130816, end: 20130816

REACTIONS (3)
  - Skin ulcer [Not Recovered/Not Resolved]
  - Cellulitis [Not Recovered/Not Resolved]
  - Ulcer [Not Recovered/Not Resolved]
